FAERS Safety Report 7691785-X (Version None)
Quarter: 2011Q3

REPORT INFORMATION
  Report Type: 
  Country: None (occurrence: None)
  Receive Date: 20110818
  Receipt Date: 20110804
  Transmission Date: 20111222
  Serious: Yes (Other)
  Sender: FDA-Public Use
  Company Number: GB-WATSON-2011-12867

PATIENT
  Age: 26 Year
  Sex: Male

DRUGS (3)
  1. METHOTREXATE [Suspect]
     Indication: BASAL CELL CARCINOMA
  2. AZATHIOPRINE [Suspect]
     Indication: BASAL CELL CARCINOMA
  3. PREDNISOLONE [Suspect]
     Indication: BASAL CELL CARCINOMA

REACTIONS (1)
  - BASAL CELL CARCINOMA [None]
